FAERS Safety Report 8600180-8 (Version None)
Quarter: 2012Q3

REPORT INFORMATION
  Report Type: 
  Country: None (occurrence: None)
  Receive Date: 20120817
  Receipt Date: 20120810
  Transmission Date: 20120928
  Serious: Yes (Death, Hospitalization, Other)
  Sender: FDA-Public Use
  Company Number: US-BIOGENIDEC-2012BI018974

PATIENT
  Age: 58 Year
  Sex: Female

DRUGS (1)
  1. AVONEX [Suspect]
     Indication: MULTIPLE SCLEROSIS
     Route: 030
     Dates: start: 20080918, end: 20111115

REACTIONS (5)
  - HAEMATOCHEZIA [None]
  - RENAL FAILURE [None]
  - DYSPNOEA [None]
  - BREAST CANCER METASTATIC [None]
  - BREAST CANCER [None]
